FAERS Safety Report 26146630 (Version 1)
Quarter: 2025Q4

REPORT INFORMATION
  Report Type: Spontaneous
  Country: US (occurrence: US)
  Receive Date: 20251211
  Receipt Date: 20251211
  Transmission Date: 20260118
  Serious: Yes (Hospitalization)
  Sender: MERCK SHARP & DOHME LLC
  Company Number: US-009507513-2357983

PATIENT
  Age: 52 Year
  Sex: Male

DRUGS (1)
  1. PEMBROLIZUMAB [Suspect]
     Active Substance: PEMBROLIZUMAB
     Indication: Malignant melanoma
     Dates: start: 202404

REACTIONS (2)
  - Immune-mediated adrenal insufficiency [Unknown]
  - Hyponatraemia [Recovered/Resolved]

NARRATIVE: CASE EVENT DATE: 20240701
